FAERS Safety Report 9206324 (Version 1)
Quarter: 2013Q1

REPORT INFORMATION
  Report Type: Spontaneous
  Country: US (occurrence: None)
  Receive Date: 20120718
  Receipt Date: 20120718
  Transmission Date: 20140127
  Serious: Yes (Other)
  Sender: FDA-Public Use
  Company Number: 163-50794-11120298

PATIENT
  Sex: Male

DRUGS (4)
  1. VIDAZA [Suspect]
     Indication: MYELODYSPLASTIC SYNDROME
     Dosage: UNK
     Dates: start: 2011
  2. VIDAZA [Suspect]
     Indication: HAEMOLYTIC ANAEMIA
     Dosage: UNK
     Dates: start: 2011
  3. BLOOD TRANFUSION (BLOOD AND RELATED PRODUCTS) (UNKNOWN) [Concomitant]
  4. PLATELETS (PLATELETS) (UNKNOWN) [Concomitant]

REACTIONS (2)
  - Platelet count decreased [None]
  - Drug ineffective [None]
